FAERS Safety Report 20999330 (Version 2)
Quarter: 2022Q3

REPORT INFORMATION
  Report Type: Other
  Country: LB (occurrence: None)
  Receive Date: 20220623
  Receipt Date: 20220715
  Transmission Date: 20221027
  Serious: Yes (Hospitalization, Other)
  Sender: FDA-Public Use
  Company Number: LB-ROCHE-3119399

PATIENT
  Sex: Male

DRUGS (3)
  1. TECENTRIQ [Suspect]
     Active Substance: ATEZOLIZUMAB
     Indication: Non-small cell lung cancer
     Route: 042
     Dates: start: 20220316
  2. MORPHINE [Concomitant]
     Active Substance: MORPHINE
  3. MEPERIDINE [Concomitant]
     Active Substance: MEPERIDINE

REACTIONS (11)
  - Investigation abnormal [Unknown]
  - Pleural effusion [Unknown]
  - Metastases to liver [Unknown]
  - Renal cancer metastatic [Unknown]
  - Pain [Not Recovered/Not Resolved]
  - Abdominal pain upper [Unknown]
  - Gait inability [Unknown]
  - Generalised oedema [Unknown]
  - Fatigue [Not Recovered/Not Resolved]
  - Hypotension [Not Recovered/Not Resolved]
  - Decreased appetite [Not Recovered/Not Resolved]

NARRATIVE: CASE EVENT DATE: 20220501
